FAERS Safety Report 16072419 (Version 1)
Quarter: 2019Q1

REPORT INFORMATION
  Report Type: Spontaneous
  Country: US (occurrence: US)
  Receive Date: 20190314
  Receipt Date: 20190314
  Transmission Date: 20190418
  Serious: No
  Sender: FDA-Public Use
  Company Number: US-ALLERGAN-1840281US

PATIENT
  Sex: Male

DRUGS (1)
  1. CANASA [Suspect]
     Active Substance: MESALAMINE
     Indication: PROCTITIS
     Dosage: 1000 MG, UNK
     Route: 054
     Dates: start: 2010, end: 201808

REACTIONS (5)
  - Product dose omission [Unknown]
  - Product colour issue [Unknown]
  - Product physical issue [Unknown]
  - Rectal haemorrhage [Recovered/Resolved]
  - Drug ineffective [Unknown]

NARRATIVE: CASE EVENT DATE: 201808
